FAERS Safety Report 21407107 (Version 1)
Quarter: 2022Q4

REPORT INFORMATION
  Report Type: Report from Study
  Country: MX (occurrence: MX)
  Receive Date: 20221004
  Receipt Date: 20221004
  Transmission Date: 20230112
  Serious: Yes (Death, Other)
  Sender: FDA-Public Use
  Company Number: MX-NOVARTISPH-NVSC2022MX223344

PATIENT
  Age: 68 Year
  Sex: Female

DRUGS (1)
  1. EXELON [Suspect]
     Active Substance: RIVASTIGMINE TARTRATE
     Indication: Memory impairment
     Dosage: 1 DOSAGE FORM, QD (18 OR 19 MG) 9.5 MG, QD PATCH 10 (CM2)
     Route: 062

REACTIONS (6)
  - Death [Fatal]
  - Fluid intake reduced [Unknown]
  - Dysuria [Unknown]
  - Eating disorder [Unknown]
  - Weight decreased [Unknown]
  - Off label use [Recovered/Resolved]

NARRATIVE: CASE EVENT DATE: 20220703
